FAERS Safety Report 15576570 (Version 1)
Quarter: 2018Q4

REPORT INFORMATION
  Report Type: Spontaneous
  Country: US (occurrence: US)
  Receive Date: 20181101
  Receipt Date: 20181101
  Transmission Date: 20190205
  Serious: No
  Sender: FDA-Public Use
  Company Number: US-MIST-TIR-2018-0411

PATIENT
  Age: 55 Year
  Sex: Female

DRUGS (2)
  1. UNSPECIFIED BLOOD PRESSURE PILL [Concomitant]
     Indication: BLOOD PRESSURE MEASUREMENT
  2. TIROSINT [Suspect]
     Active Substance: LEVOTHYROXINE SODIUM
     Indication: HYPOTHYROIDISM
     Dosage: 100MCG DAILY
     Route: 048
     Dates: start: 201802, end: 2018

REACTIONS (2)
  - Rash pruritic [Recovered/Resolved]
  - Rash vesicular [Recovered/Resolved]

NARRATIVE: CASE EVENT DATE: 201802
